FAERS Safety Report 12972203 (Version 2)
Quarter: 2017Q2

REPORT INFORMATION
  Report Type: Spontaneous
  Country: DE (occurrence: DE)
  Receive Date: 20161124
  Receipt Date: 20170412
  Transmission Date: 20170830
  Serious: Yes (Other)
  Sender: FDA-Public Use
  Company Number: DE-BIOGEN-2016BI00322240

PATIENT
  Age: 25 Year
  Sex: Male

DRUGS (1)
  1. TYSABRI [Suspect]
     Active Substance: NATALIZUMAB
     Indication: MULTIPLE SCLEROSIS
     Route: 042
     Dates: start: 201601

REACTIONS (4)
  - Anisocytosis [Unknown]
  - Poikilocytosis [Unknown]
  - Stomatocytes present [Unknown]
  - Polychromasia [Unknown]

NARRATIVE: CASE EVENT DATE: 20161024
